FAERS Safety Report 9676906 (Version 1)
Quarter: 2013Q4

REPORT INFORMATION
  Report Type: Spontaneous
  Country: US (occurrence: US)
  Receive Date: 20131107
  Receipt Date: 20131107
  Transmission Date: 20140711
  Serious: Yes (Other)
  Sender: FDA-Public Use
  Company Number: US-AMGEN-USASP2013078324

PATIENT
  Age: 50 Year
  Sex: Female
  Weight: 66.21 kg

DRUGS (3)
  1. ENBREL [Suspect]
     Indication: PRODUCT USED FOR UNKNOWN INDICATION
     Dosage: 50 MG, QWK
     Route: 058
  2. LOVAZA [Concomitant]
     Dosage: 1 G, UNK
  3. NORVASC [Concomitant]
     Dosage: 2.5 MG, UNK

REACTIONS (1)
  - Breast cancer [Unknown]
